FAERS Safety Report 6748052-8 (Version None)
Quarter: 2010Q2

REPORT INFORMATION
  Report Type: 
  Country: None (occurrence: None)
  Receive Date: 20100531
  Receipt Date: 20100521
  Transmission Date: 20101027
  Serious: Yes (Hospitalization)
  Sender: FDA-Public Use
  Company Number: GB-BIOGENIDEC-2010BI006121

PATIENT
  Age: 26 Year
  Sex: Female

DRUGS (3)
  1. TYSABRI [Suspect]
     Indication: RELAPSING-REMITTING MULTIPLE SCLEROSIS
     Dates: start: 20090827
  2. SERTRALINE HCL [Concomitant]
  3. NORDETTE-28 [Concomitant]
     Indication: CONTRACEPTION

REACTIONS (3)
  - CEREBRAL HAEMORRHAGE [None]
  - RESPIRATORY TRACT INFECTION [None]
  - SUPERIOR SAGITTAL SINUS THROMBOSIS [None]
